FAERS Safety Report 16298245 (Version 1)
Quarter: 2019Q2

REPORT INFORMATION
  Report Type: Report from Study
  Country: BR (occurrence: BR)
  Receive Date: 20190510
  Receipt Date: 20190510
  Transmission Date: 20190711
  Serious: Yes (Hospitalization, Other)
  Sender: FDA-Public Use
  Company Number: BR-TEVA-2019-BR-1047641

PATIENT
  Sex: Female

DRUGS (2)
  1. POLIVITAMINIC [Concomitant]
     Dosage: ONCE A DAY
  2. COPAXONE [Suspect]
     Active Substance: GLATIRAMER ACETATE
     Indication: MULTIPLE SCLEROSIS
     Route: 065
     Dates: start: 20170207

REACTIONS (15)
  - Memory impairment [Not Recovered/Not Resolved]
  - Cognitive disorder [Not Recovered/Not Resolved]
  - Diplegia [Recovering/Resolving]
  - Amnesia [Not Recovered/Not Resolved]
  - Hypoaesthesia [Not Recovered/Not Resolved]
  - Confusional state [Not Recovered/Not Resolved]
  - Guillain-Barre syndrome [Recovering/Resolving]
  - Agitation [Not Recovered/Not Resolved]
  - Asthenia [Unknown]
  - Fatigue [Unknown]
  - Hemiplegia [Recovering/Resolving]
  - Dermatitis atopic [Not Recovered/Not Resolved]
  - Paralysis [Recovering/Resolving]
  - Ischaemic stroke [Recovering/Resolving]
  - Pruritus [Unknown]

NARRATIVE: CASE EVENT DATE: 2017
